FAERS Safety Report 7638804-4 (Version None)
Quarter: 2011Q3

REPORT INFORMATION
  Report Type: 
  Country: None (occurrence: None)
  Receive Date: 20110727
  Receipt Date: 20110713
  Transmission Date: 20111222
  Serious: Yes (Death, Hospitalization, Other)
  Sender: FDA-Public Use
  Company Number: US-ELI_LILLY_AND_COMPANY-US201107004593

PATIENT
  Age: 92 Year
  Sex: Male

DRUGS (1)
  1. FORTEO [Suspect]
     Indication: OSTEOPOROSIS
     Dosage: 20 UG, QD
     Route: 065
     Dates: start: 20100101, end: 20110501

REACTIONS (7)
  - RENAL FAILURE [None]
  - CORONARY ARTERY DISEASE [None]
  - BLOOD POTASSIUM INCREASED [None]
  - OSTEOPOROSIS [None]
  - PERNICIOUS ANAEMIA [None]
  - DEHYDRATION [None]
  - ANURIA [None]
